FAERS Safety Report 9520110 (Version 1)
Quarter: 2013Q3

REPORT INFORMATION
  Report Type: Spontaneous
  Country: FR (occurrence: FR)
  Receive Date: 20130912
  Receipt Date: 20130912
  Transmission Date: 20140515
  Serious: Yes (Death)
  Sender: FDA-Public Use
  Company Number: PHHY2013FR100663

PATIENT
  Age: 34 Year
  Sex: Male

DRUGS (2)
  1. LEPONEX [Suspect]
     Dosage: 450 MG, QD
     Dates: start: 20130115
  2. LEPONEX [Suspect]
     Dosage: 150 MG, IN THE MORNING
     Dates: end: 201307

REACTIONS (4)
  - Completed suicide [Fatal]
  - Psychiatric evaluation abnormal [Unknown]
  - Sleep disorder [Unknown]
  - Nightmare [Unknown]
